FAERS Safety Report 5540807-0 (Version None)
Quarter: 2007Q4

REPORT INFORMATION
  Report Type: 
  Country: None (occurrence: None)
  Receive Date: 20071129
  Receipt Date: 20070806
  Transmission Date: 20080405
  Serious: Yes (Hospitalization)
  Sender: FDA-Public Use
  Company Number: US200708001132

PATIENT
  Age: 65 Year
  Sex: Female

DRUGS (12)
  1. ZYPREXA [Suspect]
  2. PROZAC [Suspect]
  3. CLARINEX [Concomitant]
  4. ASPIRIN [Concomitant]
  5. OXYBUTON (OXYBUTYNIN HYDROCHLORIDE) [Concomitant]
  6. LASIX [Concomitant]
  7. NORVASC [Concomitant]
  8. PREVACID [Concomitant]
  9. MOTRIN [Concomitant]
  10. LOVENOX [Concomitant]
  11. RHINOCORT [Concomitant]
  12. TYLENOL /SCH/ (PARACETAMOL) [Concomitant]

REACTIONS (4)
  - ARTHRALGIA [None]
  - ASTHENIA [None]
  - DRUG INEFFECTIVE [None]
  - MUSCULAR WEAKNESS [None]
